FAERS Safety Report 6759324-5 (Version None)
Quarter: 2010Q2

REPORT INFORMATION
  Report Type: 
  Country: None (occurrence: None)
  Receive Date: 20100602
  Receipt Date: 20100515
  Transmission Date: 20101027
  Serious: Yes (Other)
  Sender: FDA-Public Use
  Company Number: 2010AP001033

PATIENT
  Age: 42 Year
  Sex: Male

DRUGS (4)
  1. CLONAZEPAM [Suspect]
     Indication: STRESS
     Dosage: 12 MG;QD
  2. VALPROIC ACID [Concomitant]
  3. DEAMETHASONE [Concomitant]
  4. NARATRIPTAN [Concomitant]

REACTIONS (3)
  - AGITATION [None]
  - DRUG ABUSE [None]
  - HALLUCINATION, AUDITORY [None]
